FAERS Safety Report 10717084 (Version 1)
Quarter: 2015Q1

REPORT INFORMATION
  Report Type: Spontaneous
  Country: US (occurrence: US)
  Receive Date: 20150116
  Receipt Date: 20150116
  Transmission Date: 20150721
  Serious: No
  Sender: FDA-Public Use
  Company Number: US-PFIZER INC-2015017285

PATIENT
  Sex: Female

DRUGS (1)
  1. LYRICA [Suspect]
     Active Substance: PREGABALIN
     Indication: NEURALGIA
     Dosage: UNK

REACTIONS (14)
  - Fatigue [Unknown]
  - Myalgia [Unknown]
  - Blood cholesterol decreased [Unknown]
  - Peripheral swelling [Unknown]
  - Irritable bowel syndrome [Unknown]
  - Somnolence [Unknown]
  - Disturbance in attention [Unknown]
  - Influenza like illness [Unknown]
  - Weight increased [Unknown]
  - Constipation [Unknown]
  - Vision blurred [Unknown]
  - Dizziness [Unknown]
  - Arthralgia [Unknown]
  - Dry mouth [Unknown]
